FAERS Safety Report 12731103 (Version 2)
Quarter: 2016Q4

REPORT INFORMATION
  Report Type: Report from Study
  Country: US (occurrence: US)
  Receive Date: 20160911
  Receipt Date: 20161024
  Transmission Date: 20170207
  Serious: Yes (Death)
  Sender: FDA-Public Use
  Company Number: US-009507513-1609USA004315

PATIENT
  Age: 62 Year
  Sex: Male

DRUGS (1)
  1. KEYTRUDA [Suspect]
     Active Substance: PEMBROLIZUMAB
     Indication: COLON CANCER
     Dosage: UNK
     Route: 042
     Dates: end: 20160811

REACTIONS (2)
  - Product use issue [Unknown]
  - Death [Fatal]

NARRATIVE: CASE EVENT DATE: 20160904
